FAERS Safety Report 13057402 (Version 1)
Quarter: 2016Q4

REPORT INFORMATION
  Report Type: Spontaneous
  Country: CA (occurrence: CA)
  Receive Date: 20161223
  Receipt Date: 20161223
  Transmission Date: 20170207
  Serious: Yes (Other)
  Sender: FDA-Public Use
  Company Number: CA-ORION CORPORATION ORION PHARMA-TREX2016-2697

PATIENT
  Age: 56 Year
  Sex: Female

DRUGS (7)
  1. CIMZIA [Suspect]
     Active Substance: CERTOLIZUMAB PEGOL
     Route: 058
  2. REMICADE [Suspect]
     Active Substance: INFLIXIMAB
     Route: 042
  3. HUMIRA [Suspect]
     Active Substance: ADALIMUMAB
     Route: 058
  4. ORENCIA [Suspect]
     Active Substance: ABATACEPT
     Route: 042
  5. METHOTREXATE (TRADE NAME UNKNOWN) [Suspect]
     Active Substance: METHOTREXATE
     Route: 065
  6. ENBREL [Suspect]
     Active Substance: ETANERCEPT
     Route: 058
  7. SIMPONI [Suspect]
     Active Substance: GOLIMUMAB
     Route: 058

REACTIONS (11)
  - Rheumatoid arthritis [Unknown]
  - Fatigue [Unknown]
  - Alopecia [Unknown]
  - Menopause [Unknown]
  - Drug ineffective [Unknown]
  - Mobility decreased [Unknown]
  - Pain [Unknown]
  - Generalised oedema [Unknown]
  - Fine motor skill dysfunction [Unknown]
  - Joint injury [Unknown]
  - Drug resistance [Unknown]
